FAERS Safety Report 14404262 (Version 1)
Quarter: 2018Q1

REPORT INFORMATION
  Report Type: Spontaneous
  Country: US (occurrence: US)
  Receive Date: 20180117
  Receipt Date: 20180117
  Transmission Date: 20180509
  Serious: Yes (Hospitalization)
  Sender: FDA-Public Use
  Company Number: US-DSJP-DSU-2017-137939

PATIENT

DRUGS (1)
  1. BENICAR [Suspect]
     Active Substance: OLMESARTAN MEDOXOMIL
     Indication: PRODUCT USED FOR UNKNOWN INDICATION
     Dosage: 20 MG, QD
     Route: 048
     Dates: start: 20110527, end: 20170422

REACTIONS (9)
  - Cholelithiasis [Recovered/Resolved]
  - Small intestinal obstruction [Recovering/Resolving]
  - Wound infection [Recovering/Resolving]
  - Staphylococcal infection [Recovering/Resolving]
  - Abdominal wound dehiscence [Unknown]
  - Abdominal abscess [Recovering/Resolving]
  - Volvulus [Unknown]
  - Sprue-like enteropathy [Recovering/Resolving]
  - Abdominal hernia [Recovered/Resolved]

NARRATIVE: CASE EVENT DATE: 2011
